FAERS Safety Report 21402528 (Version 1)
Quarter: 2022Q4

REPORT INFORMATION
  Report Type: Spontaneous
  Country: US (occurrence: US)
  Receive Date: 20221003
  Receipt Date: 20221003
  Transmission Date: 20230113
  Serious: No
  Sender: FDA-Public Use
  Company Number: US-JNJFOC-20220945820

PATIENT
  Age: 13 Year
  Sex: Male

DRUGS (3)
  1. RISPERDAL [Suspect]
     Active Substance: RISPERIDONE
     Indication: Anger
     Route: 048
     Dates: start: 200004
  2. RISPERDAL [Suspect]
     Active Substance: RISPERIDONE
     Indication: Tic
  3. RISPERDAL [Suspect]
     Active Substance: RISPERIDONE
     Indication: Impulsive behaviour

REACTIONS (3)
  - Gynaecomastia [Unknown]
  - Muscle tightness [Unknown]
  - Off label use [Unknown]

NARRATIVE: CASE EVENT DATE: 20000401
